FAERS Safety Report 15083655 (Version 1)
Quarter: 2018Q2

REPORT INFORMATION
  Report Type: Report from Study
  Country: US (occurrence: US)
  Receive Date: 20180628
  Receipt Date: 20180628
  Transmission Date: 20180711
  Serious: No
  Sender: FDA-Public Use
  Company Number: US-CLOVIS ONCOLOGY-CLO-2018-000351

PATIENT
  Age: 80 Year
  Sex: Female

DRUGS (2)
  1. RUBRACA [Suspect]
     Active Substance: RUCAPARIB CAMSYLATE
     Indication: UTERINE CANCER
     Dosage: 200 MG, BID
     Route: 048
     Dates: start: 20180209, end: 20180426
  2. RUBRACA [Suspect]
     Active Substance: RUCAPARIB CAMSYLATE
     Indication: UTERINE CANCER
     Dosage: 200 MG QAM, 300 MG QPM
     Route: 065
     Dates: start: 20180214, end: 20180409

REACTIONS (8)
  - Nausea [Unknown]
  - Abdominal pain [Recovered/Resolved]
  - Off label use [Unknown]
  - Constipation [Unknown]
  - Decreased appetite [Recovered/Resolved]
  - Fatigue [Unknown]
  - Anaemia [Unknown]
  - Asthenia [Not Recovered/Not Resolved]

NARRATIVE: CASE EVENT DATE: 20180209
